FAERS Safety Report 5054649-6 (Version None)
Quarter: 2006Q2

REPORT INFORMATION
  Report Type: 
  Country: None (occurrence: None)
  Receive Date: 20060614
  Receipt Date: 20060309
  Transmission Date: 20061013
  Serious: No
  Sender: FDA-Public Use
  Company Number: US200601004705

PATIENT
  Age: 75 Year
  Sex: Male

DRUGS (4)
  1. CIALIS [Suspect]
     Indication: ERECTILE DYSFUNCTION
     Dosage: 10 MG,
     Dates: start: 20050501, end: 20051227
  2. AMLODIPINE [Concomitant]
  3. TRIAMTERENE W/EPITIZIDE (EPITIZIDE, TRIAMTERENE) [Concomitant]
  4. ROSUVASTATIN (ROSUVASTATIN) [Concomitant]

REACTIONS (6)
  - BODY TINEA [None]
  - DRUG ERUPTION [None]
  - OEDEMA PERIPHERAL [None]
  - RASH [None]
  - RASH PUSTULAR [None]
  - TINEA PEDIS [None]
